FAERS Safety Report 9256267 (Version 1)
Quarter: 2013Q2

REPORT INFORMATION
  Report Type: Spontaneous
  Country: US (occurrence: US)
  Receive Date: 20130425
  Receipt Date: 20130425
  Transmission Date: 20140414
  Serious: Yes (Other)
  Sender: FDA-Public Use
  Company Number: US-AMGEN-USASP2012039099

PATIENT
  Age: 55 Year
  Sex: Female
  Weight: 87.98 kg

DRUGS (4)
  1. NEULASTA [Suspect]
     Indication: BREAST CANCER
     Dosage: 6 MG, Q3WK
     Route: 058
     Dates: start: 20120607
  2. CYTOXAN [Concomitant]
     Indication: CHEMOTHERAPY
     Dosage: 1000 MG, UNK
     Route: 042
     Dates: start: 20120606
  3. 5 FU [Concomitant]
     Indication: CHEMOTHERAPY
     Dosage: 1000 MG, UNK
     Route: 042
     Dates: start: 20120606
  4. EPIRUBICIN [Concomitant]
     Indication: CHEMOTHERAPY
     Dosage: 200 MG, UNK
     Route: 042
     Dates: start: 20120606

REACTIONS (1)
  - Drug ineffective [Unknown]
